FAERS Safety Report 23637451 (Version 1)
Quarter: 2024Q1

REPORT INFORMATION
  Report Type: Spontaneous
  Country: US (occurrence: None)
  Receive Date: 20240315
  Receipt Date: 20240315
  Transmission Date: 20240409
  Serious: Yes (Death)
  Sender: FDA-Public Use
  Company Number: None

PATIENT
  Age: 63 Year
  Sex: Female
  Weight: 94.5 kg

DRUGS (8)
  1. TRAMETINIB [Suspect]
     Active Substance: TRAMETINIB
     Indication: Ovarian cancer recurrent
     Dosage: ?3 TABLETS DAILY ORAL
     Route: 048
     Dates: start: 20230311, end: 20240205
  2. GABAPENTIN [Concomitant]
     Active Substance: GABAPENTIN
  3. TOPIRAMATE [Concomitant]
     Active Substance: TOPIRAMATE
  4. SYNTHROID [Concomitant]
     Active Substance: LEVOTHYROXINE SODIUM
  5. LOSARTAN POTASSIUM [Concomitant]
     Active Substance: LOSARTAN POTASSIUM
  6. SERTRALINE HYDROCHLORIDE [Concomitant]
     Active Substance: SERTRALINE HYDROCHLORIDE
  7. Women^s multi vitamin [Concomitant]
  8. ACETAMINOPHEN [Concomitant]
     Active Substance: ACETAMINOPHEN

REACTIONS (7)
  - Therapy cessation [None]
  - Therapy non-responder [None]
  - Confusional state [None]
  - Visual field defect [None]
  - Cerebral infarction [None]
  - Reading disorder [None]
  - Cerebrovascular accident [None]

NARRATIVE: CASE EVENT DATE: 20240209
